FAERS Safety Report 4356205-1 (Version None)
Quarter: 2004Q2

REPORT INFORMATION
  Report Type: 
  Country: None (occurrence: None)
  Receive Date: 20040511
  Receipt Date: 20040428
  Transmission Date: 20050107
  Serious: Yes (Death, Other)
  Sender: FDA-Public Use
  Company Number: 200412000BCC

PATIENT
  Age: 10 Month
  Sex: Male
  Weight: 9.5255 kg

DRUGS (1)
  1. ALEVE [Suspect]
     Dosage: ORAL
     Route: 048

REACTIONS (4)
  - ACCIDENT [None]
  - ACCIDENTAL EXPOSURE [None]
  - CHOKING [None]
  - INJURY ASPHYXIATION [None]
